FAERS Safety Report 7467335-X (Version None)
Quarter: 2011Q2

REPORT INFORMATION
  Report Type: 
  Country: None (occurrence: None)
  Receive Date: 20110509
  Receipt Date: 20101206
  Transmission Date: 20111010
  Serious: No
  Sender: FDA-Public Use
  Company Number: US-ALEXION-A201001565

PATIENT
  Sex: Female

DRUGS (4)
  1. MAGNESIUM OXIDE [Concomitant]
     Dosage: 400 MG, QD
  2. SOLIRIS [Suspect]
     Indication: PAROXYSMAL NOCTURNAL HAEMOGLOBINURIA
     Dosage: 900 MG, Q2W
     Dates: start: 20100929
  3. FOLIC ACID [Concomitant]
     Dosage: 5 MG, QD
     Route: 048
  4. CYCLOSPORINE [Concomitant]
     Dosage: 200 MG, QD
     Route: 048

REACTIONS (3)
  - OROPHARYNGEAL PAIN [None]
  - PYREXIA [None]
  - NASAL CONGESTION [None]
